FAERS Safety Report 5011084-4 (Version None)
Quarter: 2006Q2

REPORT INFORMATION
  Report Type: 
  Country: None (occurrence: None)
  Receive Date: 20060524
  Receipt Date: 20060524
  Transmission Date: 20061013
  Serious: Yes (Hospitalization)
  Sender: FDA-Public Use
  Company Number: None

PATIENT
  Age: 80 Year
  Sex: Male

DRUGS (1)
  1. BACLOFEN [Suspect]
     Indication: HICCUPS

REACTIONS (4)
  - AGGRESSION [None]
  - HYPOTENSION [None]
  - MENTAL STATUS CHANGES [None]
  - TACHYCARDIA [None]
